FAERS Safety Report 11351838 (Version 1)
Quarter: 2015Q3

REPORT INFORMATION
  Report Type: Spontaneous
  Country: US (occurrence: US)
  Receive Date: 20150807
  Receipt Date: 20150807
  Transmission Date: 20151125
  Serious: No
  Sender: FDA-Public Use
  Company Number: US-JNJFOC-20150500799

PATIENT
  Age: 85 Year
  Sex: Female
  Weight: 72.58 kg

DRUGS (7)
  1. WOMENS ROGAINE UNSCENTED [Suspect]
     Active Substance: MINOXIDIL
     Indication: ALOPECIA
     Dosage: DOSAGE - ABOUT 3/4 CAP
     Route: 061
     Dates: start: 20150427, end: 20150430
  2. COD LIVER OIL [Concomitant]
     Active Substance: COD LIVER OIL
     Indication: DYSPEPSIA
     Dosage: DOSAGE - 2 TABLETS
     Route: 065
  3. HAIR NUTRITION [Concomitant]
     Indication: ALOPECIA
     Dosage: DOSAGE - 3 EYE DROPPER PER DAY
     Route: 065
  4. GLUCOSAMINE [Concomitant]
     Active Substance: GLUCOSAMINE
     Indication: ARTHRITIS
     Route: 065
  5. WOMENS ROGAINE UNSCENTED [Suspect]
     Active Substance: MINOXIDIL
     Route: 061
  6. COD LIVER OIL [Concomitant]
     Active Substance: COD LIVER OIL
     Indication: ARTHRALGIA
     Dosage: DOSAGE - 2 TABLETS
     Route: 065
  7. MULTIVITAMINS [Concomitant]
     Active Substance: VITAMINS
     Indication: ROUTINE HEALTH MAINTENANCE
     Route: 065

REACTIONS (2)
  - Incorrect dose administered [Unknown]
  - Alopecia [Not Recovered/Not Resolved]

NARRATIVE: CASE EVENT DATE: 20150427
